FAERS Safety Report 9390821 (Version 1)
Quarter: 2013Q3

REPORT INFORMATION
  Report Type: Spontaneous
  Country: US (occurrence: None)
  Receive Date: 20130705
  Receipt Date: 20130705
  Transmission Date: 20140515
  Serious: Yes (Death, Hospitalization)
  Sender: FDA-Public Use
  Company Number: 2013PL000100

PATIENT
  Age: 76 Year
  Sex: Female

DRUGS (1)
  1. PROLEUKIN [Suspect]
     Indication: METASTATIC RENAL CELL CARCINOMA
     Dates: start: 20130603, end: 201306

REACTIONS (9)
  - Presyncope [None]
  - Asthenia [None]
  - Dyspnoea [None]
  - Hypotension [None]
  - Renal failure [None]
  - Pancytopenia [None]
  - Metastatic renal cell carcinoma [None]
  - Disease complication [None]
  - Fluid retention [None]
